FAERS Safety Report 13605075 (Version 1)
Quarter: 2017Q2

REPORT INFORMATION
  Report Type: Spontaneous
  Country: US (occurrence: US)
  Receive Date: 20170601
  Receipt Date: 20170601
  Transmission Date: 20170830
  Serious: Yes (Life-Threatening, Hospitalization)
  Sender: FDA-Public Use
  Company Number: None

PATIENT
  Age: 44 Year
  Sex: Female
  Weight: 70 kg

DRUGS (1)
  1. MEDROXY-PROGESTERONE ACETATE, 10MG [Suspect]
     Active Substance: MEDROXYPROGESTERONE ACETATE
     Indication: METRORRHAGIA
     Route: 048
     Dates: start: 20170423, end: 20170430

REACTIONS (5)
  - Menstruation irregular [None]
  - Blood immunoglobulin A increased [None]
  - Platelet count decreased [None]
  - Blood immunoglobulin G increased [None]
  - Thrombocytopenia [None]

NARRATIVE: CASE EVENT DATE: 20170502
